FAERS Safety Report 7322015-6 (Version None)
Quarter: 2011Q1

REPORT INFORMATION
  Report Type: 
  Country: None (occurrence: None)
  Receive Date: 20110228
  Receipt Date: 20110223
  Transmission Date: 20110831
  Serious: No
  Sender: FDA-Public Use
  Company Number: US-PFIZER INC-2011040214

PATIENT
  Sex: Female
  Weight: 82.993 kg

DRUGS (2)
  1. ZOLOFT [Suspect]
     Indication: FEELING OF RELAXATION
     Dosage: 100 MG, 1X/DAY
     Route: 048
     Dates: start: 20060601, end: 20101201
  2. SERTRALINE HCL [Suspect]
     Dosage: 100 MG, DAILY
     Route: 048

REACTIONS (5)
  - WEIGHT INCREASED [None]
  - NERVOUSNESS [None]
  - DRUG INEFFECTIVE [None]
  - SOMNOLENCE [None]
  - SKIN DISORDER [None]
